FAERS Safety Report 8156607-1 (Version None)
Quarter: 2012Q1

REPORT INFORMATION
  Report Type: 
  Country: None (occurrence: None)
  Receive Date: 20120103
  Receipt Date: 20111004
  Transmission Date: 20120608
  Serious: No
  Sender: FDA-Public Use
  Company Number: AE-2011-002045

PATIENT
  Age: 57 Year
  Sex: Female

DRUGS (8)
  1. HUMULIN 70/30 [Concomitant]
  2. LISINOPRIL [Concomitant]
  3. LEVOTHYROXINE SODIUM [Concomitant]
  4. INCIVEK [Suspect]
     Dosage: 2250 MG (750 MG, 3 IN 1 D), ORAL
     Route: 048
     Dates: start: 20110909, end: 20110930
  5. METFORMIN HCL [Concomitant]
  6. PEGINTERFERON (PEGINTERFERON ALFA-2A) [Concomitant]
  7. RIBAVIRIN [Concomitant]
  8. CELEXA [Concomitant]

REACTIONS (8)
  - CHILLS [None]
  - VOMITING [None]
  - NAUSEA [None]
  - DECREASED APPETITE [None]
  - LIGAMENT SPRAIN [None]
  - ASTHENIA [None]
  - FATIGUE [None]
  - WEIGHT DECREASED [None]
